FAERS Safety Report 17294552 (Version 1)
Quarter: 2020Q1

REPORT INFORMATION
  Report Type: Spontaneous
  Country: US (occurrence: US)
  Receive Date: 20200121
  Receipt Date: 20200121
  Transmission Date: 20200409
  Serious: No
  Sender: FDA-Public Use
  Company Number: US-TEVA-2020-US-1170073

PATIENT
  Sex: Female

DRUGS (1)
  1. ALBENDAZOLE. [Suspect]
     Active Substance: ALBENDAZOLE
     Dosage: 400 TWICE A DAY
     Route: 065
     Dates: start: 20190109, end: 20190113

REACTIONS (1)
  - Skin swelling [Unknown]

NARRATIVE: CASE EVENT DATE: 20200109
